FAERS Safety Report 19654763 (Version 2)
Quarter: 2021Q3

REPORT INFORMATION
  Report Type: Other
  Country: US (occurrence: US)
  Receive Date: 20210804
  Receipt Date: 20210823
  Transmission Date: 20211014
  Serious: Yes (Other)
  Sender: FDA-Public Use
  Company Number: US-INTERCEPT-PM2021002350

PATIENT
  Age: 61 Year
  Sex: Female
  Weight: 78.01 kg

DRUGS (11)
  1. TRICOR [Concomitant]
     Active Substance: FENOFIBRATE
     Dosage: 145 MILLIGRAM, QD
     Route: 048
  2. HYDROXYCHLOROQUINE SULFATE. [Concomitant]
     Active Substance: HYDROXYCHLOROQUINE SULFATE
  3. OCALIVA [Suspect]
     Active Substance: OBETICHOLIC ACID
     Dosage: 10 MILLIGRAM (TWO 5MG TABS), QD
     Route: 048
     Dates: start: 20190515
  4. ALEVE [Suspect]
     Active Substance: NAPROXEN SODIUM
     Indication: PAIN
     Dosage: UNK
  5. VITAMIN D3 [Concomitant]
     Active Substance: CHOLECALCIFEROL
     Dosage: 25 MICROGRAM
  6. DRISDOL [Concomitant]
     Active Substance: ERGOCALCIFEROL
     Dosage: 1 DOSAGE FORM, EVERY 2 WEEKS
     Route: 048
  7. GOLYTELY [Concomitant]
     Active Substance: POLYETHYLENE GLYCOL 3350\POTASSIUM CHLORIDE\SODIUM BICARBONATE\SODIUM CHLORIDE\SODIUM SULFATE
     Dosage: 4000 MILLILITER, SINGLE
     Route: 048
     Dates: start: 20210428, end: 20210428
  8. OCALIVA [Suspect]
     Active Substance: OBETICHOLIC ACID
     Indication: PRIMARY BILIARY CHOLANGITIS
     Dosage: 5 MILLIGRAM, QD
     Route: 048
     Dates: start: 20180420
  9. PLAQUENIL                          /00072602/ [Concomitant]
     Active Substance: HYDROXYCHLOROQUINE DIPHOSPHATE
     Dosage: 200 MILLIGRAM, QD
     Route: 048
  10. ACTIGALL [Concomitant]
     Active Substance: URSODIOL
     Dosage: 600 MILLIGRAM, TID
     Route: 048
  11. ACTIGALL [Concomitant]
     Active Substance: URSODIOL
     Dosage: 250 MILLIGRAM

REACTIONS (11)
  - Cholecystectomy [Unknown]
  - Hepatic cirrhosis [Unknown]
  - COVID-19 [Unknown]
  - Varices oesophageal [Unknown]
  - Iron deficiency anaemia [Not Recovered/Not Resolved]
  - Fatigue [Unknown]
  - Pain [Unknown]
  - Portal hypertensive gastropathy [Unknown]
  - Weight decreased [Unknown]
  - Haematochezia [Unknown]
  - Nodule [Unknown]

NARRATIVE: CASE EVENT DATE: 2018
